FAERS Safety Report 8779606 (Version 1)
Quarter: 2012Q4

REPORT INFORMATION
  Report Type: 
  Country: US (occurrence: US)
  Receive Date: 20120912
  Receipt Date: 20120912
  Transmission Date: 20130627
  Serious: No
  Sender: FDA-Public Use
  Company Number: US-BAYER-2012-094504

PATIENT
  Age: 80 Year
  Sex: Female
  Weight: 68.93 kg

DRUGS (2)
  1. ALEVE CAPLET/TABLET,MIDOL EXTENDED RELIEF CAPLET [Suspect]
     Indication: BACK PAIN
     Dosage: 2 DF, QD
     Route: 048
     Dates: start: 201207, end: 20120905
  2. CHEMOTHERAPEUTICS NOS [Concomitant]

REACTIONS (1)
  - Contusion [Not Recovered/Not Resolved]
